FAERS Safety Report 21851941 (Version 5)
Quarter: 2023Q2

REPORT INFORMATION
  Report Type: Spontaneous
  Country: CA (occurrence: CA)
  Receive Date: 20230112
  Receipt Date: 20230628
  Transmission Date: 20230722
  Serious: Yes (Other)
  Sender: FDA-Public Use
  Company Number: CA-PFIZER INC-202300011419

PATIENT
  Age: 36 Year
  Sex: Female

DRUGS (2)
  1. CIBINQO [Suspect]
     Active Substance: ABROCITINIB
     Indication: Dermatitis atopic
     Dosage: 200 MG, 1X/DAY
     Route: 048
     Dates: start: 20221223
  2. METHOTREXATE [Concomitant]
     Active Substance: METHOTREXATE
     Dosage: 20 MG, WEEKLY
     Route: 058

REACTIONS (5)
  - Pulmonary congestion [Recovering/Resolving]
  - Cough [Not Recovered/Not Resolved]
  - Aphonia [Unknown]
  - Dry skin [Recovered/Resolved]
  - Pruritus [Recovering/Resolving]
